FAERS Safety Report 11578625 (Version 1)
Quarter: 2015Q3

REPORT INFORMATION
  Report Type: Spontaneous
  Country: CO (occurrence: CO)
  Receive Date: 20150930
  Receipt Date: 20150930
  Transmission Date: 20151125
  Serious: Yes (Hospitalization, Other)
  Sender: FDA-Public Use
  Company Number: CO-PFIZER INC-2015320602

PATIENT
  Age: 71 Year
  Sex: Female

DRUGS (1)
  1. NEURONTIN [Suspect]
     Active Substance: GABAPENTIN
     Indication: VASCULITIS
     Dosage: 400 MG, 2X/DAY
     Route: 048
     Dates: start: 1998

REACTIONS (4)
  - Accident [Recovering/Resolving]
  - Cardiac disorder [Recovering/Resolving]
  - Nosocomial infection [Recovering/Resolving]
  - Upper limb fracture [Recovering/Resolving]

NARRATIVE: CASE EVENT DATE: 201201
